FAERS Safety Report 8982949 (Version 2)
Quarter: 2013Q1

REPORT INFORMATION
  Report Type: Report from Study
  Country: AR (occurrence: AR)
  Receive Date: 20121221
  Receipt Date: 20130214
  Transmission Date: 20140127
  Serious: Yes (Other)
  Sender: FDA-Public Use
  Company Number: AR-ABBOTT-12P-007-1023591-00

PATIENT
  Sex: Female

DRUGS (2)
  1. HUMIRA [Suspect]
     Indication: RHEUMATOID ARTHRITIS
     Route: 058
     Dates: start: 20081001
  2. SEDATIVES [Concomitant]
     Indication: PSYCHOTHERAPY

REACTIONS (2)
  - Pulmonary mass [Not Recovered/Not Resolved]
  - Pulmonary oedema [Unknown]
